FAERS Safety Report 8138644-6 (Version None)
Quarter: 2012Q1

REPORT INFORMATION
  Report Type: 
  Country: None (occurrence: None)
  Receive Date: 20120213
  Receipt Date: 20120202
  Transmission Date: 20120608
  Serious: Yes (Other)
  Sender: FDA-Public Use
  Company Number: 2012MA001714

PATIENT
  Age: 34 Year
  Sex: Female

DRUGS (1)
  1. FLUOXETINE [Suspect]
     Indication: DEPRESSION
     Dosage: 60 MG;PO
     Route: 048
     Dates: start: 20110801, end: 20120124

REACTIONS (1)
  - ELECTROCARDIOGRAM QT PROLONGED [None]
